FAERS Safety Report 14313050 (Version 2)
Quarter: 2018Q1

REPORT INFORMATION
  Report Type: Report from Study
  Country: US (occurrence: US)
  Receive Date: 20171221
  Receipt Date: 20180130
  Transmission Date: 20180509
  Serious: Yes (Hospitalization, Other)
  Sender: FDA-Public Use
  Company Number: US-BAYER-2017-076536

PATIENT
  Age: 58 Year
  Sex: Male

DRUGS (6)
  1. ADEMPAS [Suspect]
     Active Substance: RIOCIGUAT
     Indication: PULMONARY ARTERIAL HYPERTENSION
     Dosage: UNK
  2. ADEMPAS [Suspect]
     Active Substance: RIOCIGUAT
     Indication: PULMONARY ARTERIAL HYPERTENSION
     Dosage: 2 MG, TID
     Route: 048
     Dates: start: 20171011
  3. REMODULIN [Concomitant]
     Active Substance: TREPROSTINIL
     Dosage: UNK
  4. ADEMPAS [Suspect]
     Active Substance: RIOCIGUAT
     Indication: PULMONARY ARTERIAL HYPERTENSION
     Dosage: 2.5 MG, TID
     Route: 048
     Dates: start: 20170411
  5. ADEMPAS [Suspect]
     Active Substance: RIOCIGUAT
     Indication: PULMONARY ARTERIAL HYPERTENSION
     Dosage: 0.5 MG, TID
     Route: 048
     Dates: start: 20170412
  6. ADEMPAS [Suspect]
     Active Substance: RIOCIGUAT
     Indication: PULMONARY ARTERIAL HYPERTENSION
     Dosage: 2.5 MG, TID
     Route: 048
     Dates: start: 20170616

REACTIONS (17)
  - Catheterisation cardiac [Unknown]
  - Photosensitivity reaction [None]
  - Pyrexia [Recovered/Resolved]
  - Photophobia [Recovering/Resolving]
  - Weight decreased [None]
  - Application site urticaria [None]
  - Headache [Recovering/Resolving]
  - Tinnitus [None]
  - Nasal congestion [None]
  - Epistaxis [None]
  - Headache [Recovering/Resolving]
  - Orthostatic intolerance [Not Recovered/Not Resolved]
  - Catheter site discharge [None]
  - Headache [None]
  - Hospitalisation [None]
  - Decreased appetite [None]
  - Application site scab [None]

NARRATIVE: CASE EVENT DATE: 20170411
